FAERS Safety Report 15005727 (Version 1)
Quarter: 2018Q2

REPORT INFORMATION
  Report Type: Spontaneous
  Country: US (occurrence: US)
  Receive Date: 20180521
  Receipt Date: 20180521
  Transmission Date: 20180711
  Serious: Yes (Hospitalization)
  Sender: FDA-Public Use
  Company Number: None

PATIENT
  Age: 69 Year
  Sex: Female
  Weight: 62.4 kg

DRUGS (16)
  1. ASPIRIN. [Suspect]
     Active Substance: ASPIRIN
     Indication: CORONARY ARTERY DISEASE
     Route: 048
  2. ADVAIR HFA [Concomitant]
     Active Substance: FLUTICASONE PROPIONATE\SALMETEROL XINAFOATE
  3. SINGULAIR [Concomitant]
     Active Substance: MONTELUKAST SODIUM
  4. PROAIR HFA [Concomitant]
     Active Substance: ALBUTEROL SULFATE
  5. COLACE [Concomitant]
     Active Substance: DOCUSATE SODIUM
  6. FOLVITE [Concomitant]
     Active Substance: FOLIC ACID
  7. SYNTHROID [Concomitant]
     Active Substance: LEVOTHYROXINE SODIUM
  8. ZYPREXA [Concomitant]
     Active Substance: OLANZAPINE
  9. APAP [Concomitant]
     Active Substance: ACETAMINOPHEN
  10. THERA-M [Concomitant]
  11. PRAVACHOL [Concomitant]
     Active Substance: PRAVASTATIN SODIUM
  12. AMLODIPINE [Concomitant]
     Active Substance: AMLODIPINE BESYLATE
  13. PROZAC [Concomitant]
     Active Substance: FLUOXETINE HYDROCHLORIDE
  14. FEMARA [Concomitant]
     Active Substance: LETROZOLE
  15. LOVENOX [Suspect]
     Active Substance: ENOXAPARIN SODIUM
     Indication: PROPHYLAXIS
     Dosage: ?          OTHER FREQUENCY:Q24HR;?
     Route: 058
  16. PRILOSEC [Concomitant]
     Active Substance: OMEPRAZOLE MAGNESIUM

REACTIONS (11)
  - Localised oedema [None]
  - Haemorrhagic anaemia [None]
  - Diverticulum [None]
  - Intestinal haemorrhage [None]
  - Gastrointestinal wall thickening [None]
  - Haemoglobin decreased [None]
  - Rectal haemorrhage [None]
  - Tachycardia [None]
  - Pulmonary mass [None]
  - Metastases to lung [None]
  - Rectal ulcer [None]

NARRATIVE: CASE EVENT DATE: 20180209
